FAERS Safety Report 7659265-5 (Version None)
Quarter: 2011Q3

REPORT INFORMATION
  Report Type: 
  Country: None (occurrence: None)
  Receive Date: 20110805
  Receipt Date: 20110728
  Transmission Date: 20111222
  Serious: Yes (Other)
  Sender: FDA-Public Use
  Company Number: US-ROCHE-747341

PATIENT
  Sex: Male

DRUGS (4)
  1. PEGINTERFERON ALFA-2A [Suspect]
     Indication: HEPATITIS C
     Dosage: FORM: PRE-FILLED SYRINGE; WEEK 18
     Route: 065
     Dates: start: 20101008
  2. IBUPROFEN [Concomitant]
  3. RIBAVIRIN [Suspect]
     Indication: HEPATITIS C
     Dosage: DIVIDED DOSES. WEEK 18
     Route: 065
     Dates: start: 20101008
  4. MILK THISTLE [Concomitant]

REACTIONS (5)
  - HAEMATEMESIS [None]
  - SENSORY DISTURBANCE [None]
  - HAEMORRHAGE [None]
  - VIITH NERVE PARALYSIS [None]
  - MENTAL IMPAIRMENT [None]
